FAERS Safety Report 5047963-1 (Version None)
Quarter: 2006Q3

REPORT INFORMATION
  Report Type: 
  Country: None (occurrence: None)
  Receive Date: 20060711
  Receipt Date: 20060705
  Transmission Date: 20061208
  Serious: Yes (Hospitalization)
  Sender: FDA-Public Use
  Company Number: AU-BRISTOL-MYERS SQUIBB COMPANY-13432471

PATIENT
  Age: 55 Year
  Sex: Female

DRUGS (3)
  1. CISPLATIN [Suspect]
     Indication: GASTRIC CANCER
     Route: 042
     Dates: start: 20060612, end: 20060612
  2. FLUOROURACIL [Suspect]
     Indication: GASTRIC CANCER
     Route: 042
     Dates: start: 20060612, end: 20060617
  3. SERTRALINE HCL [Concomitant]
     Indication: ANXIETY
     Route: 048
     Dates: start: 20040101

REACTIONS (1)
  - INTESTINAL PERFORATION [None]
